FAERS Safety Report 8305855 (Version 7)
Quarter: 2012Q4

REPORT INFORMATION
  Report Type: 
  Country: JP (occurrence: JP)
  Receive Date: 20111221
  Receipt Date: 20121207
  Transmission Date: 20130627
  Serious: Yes (Death, Hospitalization, Other)
  Sender: FDA-Public Use
  Company Number: PHHY2011JP105220

PATIENT
  Age: 65 Year
  Sex: Female
  Weight: 50 kg

DRUGS (6)
  1. LAMISIL [Suspect]
     Indication: TINEA INFECTION
     Dosage: 125 mg, QD
     Route: 048
     Dates: start: 20111109, end: 20111124
  2. ALLELOCK [Concomitant]
     Dosage: 5 mg, QD
     Route: 048
     Dates: start: 20111109, end: 20111124
  3. SOLU-MEDROL [Concomitant]
     Dosage: 1000 mg for 3 days
     Route: 042
     Dates: start: 20111130, end: 20111202
  4. PREDONINE [Concomitant]
     Dosage: 40 mg
     Route: 048
     Dates: start: 20111203
  5. PREDONINE [Concomitant]
     Dosage: 30 mg
     Route: 048
     Dates: start: 20111203
  6. PREDONINE [Concomitant]
     Dosage: 20 mg
     Route: 048
     Dates: start: 20111203

REACTIONS (10)
  - Interstitial lung disease [Fatal]
  - Dyspnoea exertional [Fatal]
  - Oxygen saturation decreased [Fatal]
  - Hepatic function abnormal [Not Recovered/Not Resolved]
  - Alanine aminotransferase increased [Recovering/Resolving]
  - Aspartate aminotransferase increased [Recovering/Resolving]
  - Malaise [Unknown]
  - Decreased appetite [Unknown]
  - Rhabdomyolysis [Recovered/Resolved]
  - Blood creatine phosphokinase increased [Recovered/Resolved]
